FAERS Safety Report 7208821-7 (Version None)
Quarter: 2011Q1

REPORT INFORMATION
  Report Type: 
  Country: None (occurrence: None)
  Receive Date: 20110104
  Receipt Date: 20101229
  Transmission Date: 20110831
  Serious: Yes (Other)
  Sender: FDA-Public Use
  Company Number: PHHY2010DE76765

PATIENT
  Sex: Male

DRUGS (3)
  1. SANDIMMUNE [Suspect]
     Indication: BONE MARROW TRANSPLANT
     Route: 048
  2. CLARITHROMYCIN [Concomitant]
     Indication: EYE INFECTION
     Dosage: 2 X 500 MG PER DAY
     Route: 048
  3. SIMULECT [Suspect]
     Indication: BONE MARROW TRANSPLANT
     Dosage: ONCE EVERY WEEK AND IN TOTAL FOR 4 TIMES
     Dates: start: 20101015, end: 20101119

REACTIONS (7)
  - SKIN HYPERTROPHY [None]
  - RENAL IMPAIRMENT [None]
  - KERATORHEXIS [None]
  - INAPPROPRIATE SCHEDULE OF DRUG ADMINISTRATION [None]
  - CORNEAL TRANSPLANT [None]
  - EYE INFECTION [None]
  - BLOOD CREATININE INCREASED [None]
